FAERS Safety Report 22251307 (Version 1)
Quarter: 2023Q2

REPORT INFORMATION
  Report Type: Spontaneous
  Country: US (occurrence: None)
  Receive Date: 20230425
  Receipt Date: 20230425
  Transmission Date: 20230722
  Serious: Yes (Hospitalization)
  Sender: FDA-Public Use
  Company Number: None

PATIENT
  Age: 75 Year
  Sex: Female
  Weight: 64.39 kg

DRUGS (1)
  1. CARVYKTI [Suspect]
     Active Substance: CILTACABTAGENE AUTOLEUCEL
     Dates: start: 20230329, end: 20230329

REACTIONS (3)
  - Lymphocyte adoptive therapy [None]
  - Cytokine release syndrome [None]
  - Pneumonia [None]

NARRATIVE: CASE EVENT DATE: 20230331
